FAERS Safety Report 18920186 (Version 3)
Quarter: 2021Q3

REPORT INFORMATION
  Report Type: Spontaneous
  Country: US (occurrence: US)
  Receive Date: 20210222
  Receipt Date: 20210823
  Transmission Date: 20211014
  Serious: No
  Sender: FDA-Public Use
  Company Number: US-AKCEA THERAPEUTICS-2020IS001641

PATIENT
  Age: 71 Year
  Sex: Female

DRUGS (4)
  1. ISSD (INTEGRATED SYRINGE SAFETY DEVICE) [Suspect]
     Active Substance: DEVICE
  2. ASPIRIN /00002701/ [Concomitant]
     Active Substance: ASPIRIN
     Route: 065
  3. ASPIRIN /00002701/ [Concomitant]
     Active Substance: ASPIRIN
     Route: 065
     Dates: start: 202101
  4. TEGSEDI [Suspect]
     Active Substance: INOTERSEN SODIUM
     Indication: HEREDITARY NEUROPATHIC AMYLOIDOSIS
     Route: 058
     Dates: start: 20200610

REACTIONS (23)
  - Urine abnormality [Not Recovered/Not Resolved]
  - Red cell distribution width increased [Unknown]
  - Blood glucose increased [Unknown]
  - Urine ketone body present [Not Recovered/Not Resolved]
  - White blood cells urine positive [Unknown]
  - Epistaxis [Unknown]
  - Blood creatinine increased [Not Recovered/Not Resolved]
  - Bacterial test positive [Not Recovered/Not Resolved]
  - Mean cell haemoglobin concentration decreased [Unknown]
  - Protein urine present [Not Recovered/Not Resolved]
  - Red blood cells urine positive [Unknown]
  - Mean cell haemoglobin decreased [Unknown]
  - Urine leukocyte esterase positive [Unknown]
  - Injection site pain [Unknown]
  - Urine protein/creatinine ratio increased [Not Recovered/Not Resolved]
  - Urinary casts [Not Recovered/Not Resolved]
  - Urine analysis abnormal [Unknown]
  - Injection site pruritus [Unknown]
  - Glomerular filtration rate decreased [Not Recovered/Not Resolved]
  - Platelet count increased [Recovered/Resolved]
  - Injection site bruising [Unknown]
  - Urinary sediment present [Not Recovered/Not Resolved]
  - Creatinine urine abnormal [Unknown]

NARRATIVE: CASE EVENT DATE: 202010
